FAERS Safety Report 24831959 (Version 1)
Quarter: 2025Q1

REPORT INFORMATION
  Report Type: Spontaneous
  Country: US (occurrence: None)
  Receive Date: 20250109
  Receipt Date: 20250109
  Transmission Date: 20250409
  Serious: Yes (Hospitalization, Disabling)
  Sender: FDA-CTU
  Company Number: None

PATIENT
  Age: 23 Year
  Sex: Male
  Weight: 85.5 kg

DRUGS (1)
  1. REMERON [Suspect]
     Active Substance: MIRTAZAPINE
     Indication: Sleep disorder
     Dosage: OTHER QUANTITY : 12 TABLET(S);?FREQUENCY : AT BEDTIME;?
     Route: 048

REACTIONS (7)
  - Genital disorder [None]
  - Hypoaesthesia [None]
  - Disturbance in attention [None]
  - Feeling abnormal [None]
  - Nervous system disorder [None]
  - Inflammation [None]
  - Emotional disorder [None]

NARRATIVE: CASE EVENT DATE: 20241215
